FAERS Safety Report 9913036 (Version 1)
Quarter: 2014Q1

REPORT INFORMATION
  Report Type: Spontaneous
  Country: US (occurrence: None)
  Receive Date: 20140218
  Receipt Date: 20140218
  Transmission Date: 20141002
  Serious: Yes (Other)
  Sender: FDA-Public Use
  Company Number: None

PATIENT
  Age: 45 Year
  Sex: Female

DRUGS (1)
  1. AVELOX [Suspect]
     Indication: EAR PAIN
     Dosage: 1 PILL ONCE DAILY TAKEN BY MOUTH
     Route: 048
     Dates: start: 20140211, end: 20140211

REACTIONS (6)
  - Swelling face [None]
  - Urticaria [None]
  - Abdominal pain [None]
  - Heart rate increased [None]
  - Erythema [None]
  - Sensation of foreign body [None]
